FAERS Safety Report 14620345 (Version 1)
Quarter: 2018Q1

REPORT INFORMATION
  Report Type: Spontaneous
  Country: US (occurrence: US)
  Receive Date: 20180309
  Receipt Date: 20180309
  Transmission Date: 20180509
  Serious: Yes (Death)
  Sender: FDA-Public Use
  Company Number: US-BAYER-2018-041025

PATIENT

DRUGS (2)
  1. XOFIGO [Suspect]
     Active Substance: RADIUM RA-223 DICHLORIDE
  2. ZYTIGA [Concomitant]
     Active Substance: ABIRATERONE ACETATE

REACTIONS (1)
  - Death [Fatal]
